FAERS Safety Report 8082728-8 (Version None)
Quarter: 2012Q1

REPORT INFORMATION
  Report Type: 
  Country: None (occurrence: None)
  Receive Date: 20120127
  Receipt Date: 20110228
  Transmission Date: 20120608
  Serious: No
  Sender: FDA-Public Use
  Company Number: US-ABBOTT-11P-163-0708330-00

PATIENT
  Sex: Female
  Weight: 92.616 kg

DRUGS (6)
  1. GLIPIZIDE [Concomitant]
     Indication: DIABETES MELLITUS
  2. PREDNISONE TAB [Concomitant]
     Indication: COLITIS ULCERATIVE
  3. ASACOL [Concomitant]
     Indication: COLITIS ULCERATIVE
  4. HUMIRA [Suspect]
     Indication: COLITIS ULCERATIVE
     Dates: start: 20110222
  5. MULTI-VITAMINS [Concomitant]
     Indication: VITAMIN SUPPLEMENTATION
  6. PROBIOTICS [Concomitant]
     Indication: COLITIS ULCERATIVE

REACTIONS (4)
  - PYREXIA [None]
  - NIGHT SWEATS [None]
  - ABDOMINAL PAIN UPPER [None]
  - FLATULENCE [None]
